FAERS Safety Report 10063836 (Version 3)
Quarter: 2014Q2

REPORT INFORMATION
  Report Type: Report from Study
  Country: US (occurrence: US)
  Receive Date: 20140408
  Receipt Date: 20140623
  Transmission Date: 20141212
  Serious: Yes (Hospitalization)
  Sender: FDA-Public Use
  Company Number: US-BIOGENIDEC-168361

PATIENT
  Age: 52 Year
  Sex: Female
  Weight: 63 kg

DRUGS (13)
  1. AVONEX [Suspect]
     Indication: MULTIPLE SCLEROSIS
     Route: 030
     Dates: start: 20010404
  2. AVONEX [Suspect]
     Indication: MULTIPLE SCLEROSIS
     Route: 030
  3. PARNATE [Concomitant]
     Indication: DEPRESSION
     Dates: start: 1980
  4. XANAX [Concomitant]
     Indication: ANXIETY DISORDER
     Dates: start: 1987
  5. BEL-PHEN-ERGOT [Concomitant]
     Indication: MULTIPLE SCLEROSIS
     Dates: start: 200210
  6. PROVIGIL [Concomitant]
     Indication: FATIGUE
     Dates: start: 1992
  7. TIZANIDINE [Concomitant]
     Route: 048
     Dates: start: 201403
  8. ALPRAZOLAM [Concomitant]
     Indication: INSOMNIA
     Route: 048
  9. EFFEXOR [Concomitant]
     Route: 048
  10. FOSAMAX [Concomitant]
     Route: 048
  11. LISINOPRIL [Concomitant]
     Route: 048
  12. PREDNISONE [Concomitant]
     Route: 048
  13. SIMVASTIN [Concomitant]
     Route: 048

REACTIONS (5)
  - Vaginal haemorrhage [Recovered/Resolved]
  - Injection site discomfort [Unknown]
  - Influenza like illness [Unknown]
  - Pneumonia [Recovered/Resolved]
  - Osteoarthritis [Not Recovered/Not Resolved]
